FAERS Safety Report 4830235-5 (Version None)
Quarter: 2005Q4

REPORT INFORMATION
  Report Type: 
  Country: None (occurrence: None)
  Receive Date: 20051117
  Receipt Date: 20051006
  Transmission Date: 20060501
  Serious: Yes (Hospitalization, Other)
  Sender: FDA-Public Use
  Company Number: US-GLAXOSMITHKLINE-A0577381A

PATIENT
  Age: 66 Year
  Sex: Female
  Weight: 48.6 kg

DRUGS (4)
  1. ZOFRAN [Suspect]
     Indication: NAUSEA
     Dosage: 4MG UNKNOWN
     Route: 042
     Dates: start: 20050901
  2. EMETROL [Concomitant]
     Indication: NAUSEA
  3. HORMONE REPLACEMENT THERAPY [Concomitant]
  4. INDOCIN SR [Concomitant]

REACTIONS (3)
  - CONFUSIONAL STATE [None]
  - RESTLESS LEGS SYNDROME [None]
  - SPEECH DISORDER [None]
